FAERS Safety Report 7827628-0 (Version None)
Quarter: 2011Q4

REPORT INFORMATION
  Report Type: 
  Country: None (occurrence: None)
  Receive Date: 20111020
  Receipt Date: 20111017
  Transmission Date: 20120403
  Serious: Yes (Disabling)
  Sender: FDA-Public Use
  Company Number: FR-ROCHE-1005265

PATIENT
  Age: 56 Year
  Sex: Female

DRUGS (3)
  1. HERCEPTIN [Concomitant]
     Indication: BREAST CANCER METASTATIC
  2. AVASTIN [Suspect]
     Indication: BREAST CANCER METASTATIC
  3. XELODA [Suspect]
     Indication: BREAST CANCER METASTATIC

REACTIONS (1)
  - PALMAR-PLANTAR ERYTHRODYSAESTHESIA SYNDROME [None]
